FAERS Safety Report 21491970 (Version 1)
Quarter: 2022Q4

REPORT INFORMATION
  Report Type: Spontaneous
  Country: US (occurrence: US)
  Receive Date: 20221021
  Receipt Date: 20221021
  Transmission Date: 20230113
  Serious: No
  Sender: FDA-Public Use
  Company Number: US-PFIZER INC-PV202200086475

PATIENT
  Age: 65 Year
  Sex: Female

DRUGS (1)
  1. IBRANCE [Suspect]
     Active Substance: PALBOCICLIB
     Indication: Breast cancer female
     Dosage: 125 MG, CYCLIC (TAKE 1 TABLET EVERY DAY ON DAYS 1-21 THEN OFF FOR 7 DAYS EVERY 28 DAY CYCLE)
     Route: 048
     Dates: start: 20211015

REACTIONS (1)
  - Gastrooesophageal reflux disease [Unknown]
